FAERS Safety Report 4711608-8 (Version None)
Quarter: 2005Q2

REPORT INFORMATION
  Report Type: 
  Country: None (occurrence: None)
  Receive Date: 20050629
  Receipt Date: 20050510
  Transmission Date: 20051028
  Serious: No
  Sender: FDA-Public Use
  Company Number: 05P-163-0286525-00

PATIENT
  Age: 79 Year
  Sex: Male
  Weight: 114 kg

DRUGS (12)
  1. HUMIRA [Suspect]
     Indication: RHEUMATOID ARTHRITIS
     Dosage: 40 MG, 1 IN 2 WK, SUBCUTANEOUS
     Route: 058
     Dates: start: 20030411
  2. TERAZOSIN HCL [Concomitant]
  3. ATENOLOL [Concomitant]
  4. INDAPAMIDE [Concomitant]
  5. ALPRAZOLAM [Concomitant]
  6. POTASSIUM CHLORIDE [Concomitant]
  7. FUROSEMIDE [Concomitant]
  8. AZATHIOPRINE [Concomitant]
  9. FOLIC ACID [Concomitant]
  10. ESOMEPRAZOLE [Concomitant]
  11. VITAMINS [Concomitant]
  12. ASPIRIN [Concomitant]

REACTIONS (1)
  - COMPUTERISED TOMOGRAM ABNORMAL [None]
